FAERS Safety Report 13101216 (Version 2)
Quarter: 2017Q1

REPORT INFORMATION
  Report Type: Spontaneous
  Country: CH (occurrence: IR)
  Receive Date: 20170110
  Receipt Date: 20170203
  Transmission Date: 20170428
  Serious: Yes (Hospitalization)
  Sender: FDA-Public Use
  Company Number: CH-LPDUSPRD-20170011

PATIENT
  Age: 33 Year
  Sex: Female
  Weight: 60 kg

DRUGS (1)
  1. FERINJECT [Suspect]
     Active Substance: FERRIC CARBOXYMALTOSE
     Dosage: 500MG IN 100ML NS
     Route: 041
     Dates: start: 20161127, end: 20161127

REACTIONS (11)
  - Vomiting [Unknown]
  - Chest discomfort [Unknown]
  - Abdominal pain [Unknown]
  - Flushing [Unknown]
  - Dyspnoea [Unknown]
  - Back pain [Unknown]
  - Agitation [Unknown]
  - Hyperventilation [Unknown]
  - Muscle tightness [Unknown]
  - Throat tightness [Unknown]
  - Nausea [Unknown]

NARRATIVE: CASE EVENT DATE: 20161127
